FAERS Safety Report 8383551-7 (Version None)
Quarter: 2012Q1

REPORT INFORMATION
  Report Type: 
  Country: None (occurrence: None)
  Receive Date: 20120323
  Receipt Date: 20110320
  Transmission Date: 20120608
  Serious: Yes (Other)
  Sender: FDA-Public Use
  Company Number: 163-21880-11032449

PATIENT
  Age: 45 Year
  Sex: Male

DRUGS (4)
  1. REVLIMID [Suspect]
     Indication: PRODUCT USED FOR UNKNOWN INDICATION
     Dosage: 25 MG, 1 IN 1 D, PO
     Route: 048
     Dates: start: 20110126
  2. DOCUSATE (DOCUSATE) [Concomitant]
  3. SENNA (SENNA) [Concomitant]
  4. VELCADE [Concomitant]

REACTIONS (2)
  - RASH [None]
  - LIP SWELLING [None]
